FAERS Safety Report 9041634 (Version 1)
Quarter: 2013Q1

REPORT INFORMATION
  Report Type: Spontaneous
  Country: US (occurrence: US)
  Receive Date: 20130129
  Receipt Date: 20130129
  Transmission Date: 20140127
  Serious: No
  Sender: FDA-Public Use
  Company Number: US-ABBOTT-12P-163-0902646-00

PATIENT
  Sex: Female

DRUGS (7)
  1. HUMIRA 40 MG/ 0.8 ML PRE-FILLED SYRINGE [Suspect]
     Indication: CROHN^S DISEASE
     Route: 058
     Dates: start: 20111031
  2. ASACOL [Concomitant]
     Indication: CROHN^S DISEASE
  3. FIBER PILLS [Concomitant]
     Indication: CROHN^S DISEASE
  4. MESALAMIN [Concomitant]
     Indication: CROHN^S DISEASE
     Dosage: RETENTION ENEMA AT NIGHT.
     Dates: start: 20120109
  5. FLORANEX [Concomitant]
     Indication: PROBIOTIC THERAPY
  6. LOSARTAN POTASSIUM [Concomitant]
     Indication: HYPERTENSION
  7. PEPCID [Concomitant]
     Indication: GASTROOESOPHAGEAL REFLUX DISEASE

REACTIONS (1)
  - Drug ineffective [Not Recovered/Not Resolved]
